FAERS Safety Report 12248923 (Version 1)
Quarter: 2016Q2

REPORT INFORMATION
  Report Type: Spontaneous
  Country: US (occurrence: US)
  Receive Date: 20160408
  Receipt Date: 20160408
  Transmission Date: 20160815
  Serious: No
  Sender: FDA-Public Use
  Company Number: US-009507513-1604USA003246

PATIENT
  Age: 67 Year
  Sex: Female

DRUGS (1)
  1. ASMANEX HFA [Suspect]
     Active Substance: MOMETASONE FUROATE
     Indication: ASTHMA
     Dosage: 200 MCG/ 2 PUFFS TWICE A DAY
     Route: 055
     Dates: start: 20160328

REACTIONS (4)
  - Swelling [Not Recovered/Not Resolved]
  - Tongue discolouration [Not Recovered/Not Resolved]
  - Sinus congestion [Not Recovered/Not Resolved]
  - Oropharyngeal pain [Not Recovered/Not Resolved]

NARRATIVE: CASE EVENT DATE: 20160404
